FAERS Safety Report 22244019 (Version 1)
Quarter: 2023Q2

REPORT INFORMATION
  Report Type: Spontaneous
  Country: US (occurrence: US)
  Receive Date: 20230424
  Receipt Date: 20230424
  Transmission Date: 20230721
  Serious: Yes (Other)
  Sender: FDA-Public Use
  Company Number: US-drreddys-LIT/USA/23/0163767

PATIENT
  Age: 3 Decade
  Sex: Male

DRUGS (5)
  1. CETIRIZINE [Suspect]
     Active Substance: CETIRIZINE HYDROCHLORIDE
     Indication: Ear congestion
     Dosage: FOR 2 WEEKS (DAYS 9-24)
     Route: 048
  2. FLUTICASONE PROPIONATE [Suspect]
     Active Substance: FLUTICASONE PROPIONATE
     Indication: Allergic otitis media
     Route: 045
  3. PREDNISONE [Suspect]
     Active Substance: PREDNISONE
     Indication: Deafness
     Dosage: ON DAYS 44-50, WITH A 5-DAY TAPER
  4. PSEUDOEPHEDRINE [Suspect]
     Active Substance: PSEUDOEPHEDRINE
     Indication: Allergic otitis media
  5. TOZINAMERAN [Concomitant]
     Active Substance: TOZINAMERAN
     Indication: COVID-19 immunisation

REACTIONS (5)
  - Meniere^s disease [Unknown]
  - Deafness [Unknown]
  - Condition aggravated [Unknown]
  - Acoustic neuroma [Unknown]
  - Drug ineffective for unapproved indication [Unknown]
